FAERS Safety Report 18543934 (Version 1)
Quarter: 2020Q4

REPORT INFORMATION
  Report Type: Spontaneous
  Country: US (occurrence: US)
  Receive Date: 20201125
  Receipt Date: 20201125
  Transmission Date: 20210114
  Serious: Yes (Other)
  Sender: FDA-Public Use
  Company Number: US-SUN PHARMACEUTICAL INDUSTRIES LTD-2020R1-268798

PATIENT
  Age: 55 Year
  Sex: Female

DRUGS (4)
  1. LISDEXAMFETAMINE [Suspect]
     Active Substance: LISDEXAMFETAMINE
     Indication: EATING DISORDER
     Dosage: 40 MILLIGRAM
     Route: 065
  2. PHENTERMINE. [Suspect]
     Active Substance: PHENTERMINE
     Indication: DECREASED APPETITE
  3. LISDEXAMFETAMINE [Suspect]
     Active Substance: LISDEXAMFETAMINE
     Indication: DECREASED APPETITE
  4. PHENTERMINE. [Suspect]
     Active Substance: PHENTERMINE
     Indication: EATING DISORDER
     Dosage: 37.5 MILLIGRAM, UNK
     Route: 065

REACTIONS (1)
  - Stress cardiomyopathy [Recovered/Resolved]
